FAERS Safety Report 4561317-3 (Version None)
Quarter: 2005Q1

REPORT INFORMATION
  Report Type: 
  Country: None (occurrence: None)
  Receive Date: 20050121
  Receipt Date: 20050105
  Transmission Date: 20050727
  Serious: Yes (Hospitalization)
  Sender: FDA-Public Use
  Company Number: 9664

PATIENT
  Age: 48 Year
  Sex: Female

DRUGS (7)
  1. CARBOPLATIN [Suspect]
     Dosage: 500 MG FREQ UNK; IV
     Route: 042
  2. DEXAMETHASONE [Suspect]
     Dosage: NI; IV
     Route: 042
  3. PACLITAXEL [Suspect]
     Dosage: 175 MG/M2 FREQ UNK; IV
     Route: 042
  4. RANITIDINE [Suspect]
     Dosage: 50 MG FREQ UNK; IV
     Route: 042
  5. DEXCHLORPHENIRAMINE [Suspect]
     Dosage: 5 MG FREQ UNK, UNK
     Route: 065
  6. ONDANSETRON [Suspect]
     Dosage: NI; UNK
  7. CYCLOPHOSPHAMIDE [Concomitant]

REACTIONS (5)
  - FEELING HOT [None]
  - HYPERHIDROSIS [None]
  - HYPOTENSION [None]
  - MALAISE [None]
  - SHOCK [None]
